FAERS Safety Report 20736390 (Version 1)
Quarter: 2022Q2

REPORT INFORMATION
  Report Type: Spontaneous
  Country: CN (occurrence: None)
  Receive Date: 20220421
  Receipt Date: 20220421
  Transmission Date: 20220721
  Serious: Yes (Other)
  Sender: FDA-Public Use
  Company Number: CN-ROCHE-3078897

PATIENT
  Age: 55 Year
  Sex: Female
  Weight: 47 kg

DRUGS (15)
  1. XELODA [Suspect]
     Active Substance: CAPECITABINE
     Indication: Rectal adenocarcinoma
     Dosage: XELOX + BEVACIZUMAB
     Route: 048
  2. AVASTIN [Suspect]
     Active Substance: BEVACIZUMAB
     Indication: Rectal adenocarcinoma
     Dosage: FLUOROPYRIMIDINES + BEVACIZUMAB
     Route: 065
     Dates: start: 20150813, end: 20170719
  3. AVASTIN [Suspect]
     Active Substance: BEVACIZUMAB
     Dosage: FOLFIRI + BEVACIZUMAB
     Route: 065
     Dates: start: 20171101, end: 20180104
  4. AVASTIN [Suspect]
     Active Substance: BEVACIZUMAB
     Dosage: FOLFIRI + BEVACIZUMAB
     Route: 065
     Dates: start: 20180124
  5. OXALIPLATIN [Concomitant]
     Active Substance: OXALIPLATIN
     Indication: Rectal adenocarcinoma
     Dosage: XELOX + BEVACIZUMAB AND MFOLFOX6.
     Route: 065
  6. LEUCOVORIN CALCIUM [Concomitant]
     Active Substance: LEUCOVORIN CALCIUM
     Indication: Rectal adenocarcinoma
     Dosage: FOLFIRI + BEVACIZUMAB
     Route: 065
     Dates: start: 20171101, end: 20180104
  7. LEUCOVORIN CALCIUM [Concomitant]
     Active Substance: LEUCOVORIN CALCIUM
     Dosage: FOLFIRI + BEVACIZUMAB
     Route: 065
     Dates: start: 20180124, end: 20190109
  8. FLUOROURACIL [Concomitant]
     Active Substance: FLUOROURACIL
     Indication: Rectal adenocarcinoma
     Dosage: FOLFIRI + BEVACIZUMAB
     Route: 065
     Dates: start: 20171101, end: 20180104
  9. FLUOROURACIL [Concomitant]
     Active Substance: FLUOROURACIL
     Dosage: FOLFIRI + BEVACIZUMAB
     Route: 065
     Dates: start: 20180124, end: 20190109
  10. IRINOTECAN [Concomitant]
     Active Substance: IRINOTECAN
     Indication: Rectal adenocarcinoma
     Dosage: FOLFIRI + BEVACIZUMAB
     Route: 065
     Dates: start: 20171101, end: 20180104
  11. IRINOTECAN [Concomitant]
     Active Substance: IRINOTECAN
     Dosage: FOLFIRI + BEVACIZUMAB
     Route: 065
     Dates: start: 20180124, end: 20190109
  12. IRINOTECAN [Concomitant]
     Active Substance: IRINOTECAN
     Dosage: CPT-11 (IRINOTECAN) + C225 (CETUXIMAB)
     Dates: start: 20190329, end: 20190917
  13. CETUXIMAB [Concomitant]
     Active Substance: CETUXIMAB
     Indication: Rectal adenocarcinoma
     Dosage: CPT11 (IRINOTECAN) + C225 (CETUXIMAB)
     Route: 065
     Dates: start: 20190329, end: 20190917
  14. REGORAFENIB [Concomitant]
     Active Substance: REGORAFENIB
     Indication: Rectal adenocarcinoma
     Dosage: ON DAY 1 TO 21, 4 WEEKS AS A CYCLE
     Route: 065
     Dates: start: 20200105
  15. REGORAFENIB [Concomitant]
     Active Substance: REGORAFENIB
     Dosage: TABLET, PER DAY, CONTINUOUS ORAL ADMINISTRATION FOR 14 DAYS, REST FOR 2 WEEKS
     Route: 048
     Dates: start: 202107

REACTIONS (3)
  - Ill-defined disorder [Unknown]
  - Palmar-plantar erythrodysaesthesia syndrome [Unknown]
  - Skin exfoliation [Unknown]
